FAERS Safety Report 4415028-5 (Version None)
Quarter: 2004Q3

REPORT INFORMATION
  Report Type: 
  Country: None (occurrence: None)
  Receive Date: 20040802
  Receipt Date: 20040802
  Transmission Date: 20050211
  Serious: Yes (Death, Hospitalization)
  Sender: FDA-Public Use
  Company Number: None

PATIENT
  Age: 26 Year
  Sex: Male

DRUGS (2)
  1. FLUDARABINE PHOSPHATE [Suspect]
     Indication: HODGKIN'S DISEASE
     Dosage: 30 MG/M2
     Dates: start: 20030925, end: 20030929
  2. MELPHALAN [Suspect]
     Indication: HODGKIN'S DISEASE
     Dosage: 70 MG/M2
     Dates: start: 20030928, end: 20040929

REACTIONS (3)
  - CYTOMEGALOVIRUS INFECTION [None]
  - PNEUMONIA [None]
  - RESPIRATORY FAILURE [None]
